FAERS Safety Report 16908229 (Version 1)
Quarter: 2019Q4

REPORT INFORMATION
  Report Type: Spontaneous
  Country: NL (occurrence: NL)
  Receive Date: 20191011
  Receipt Date: 20191011
  Transmission Date: 20200122
  Serious: Yes (Hospitalization, Other)
  Sender: FDA-Public Use
  Company Number: NL-GLAXOSMITHKLINE-NL2019GSK182570

PATIENT
  Age: 56 Year
  Sex: Male

DRUGS (3)
  1. ANCEF [Suspect]
     Active Substance: CEFAZOLIN SODIUM
     Indication: CIRCUMCISION
     Dosage: UNK
  2. ENBREL [Concomitant]
     Active Substance: ETANERCEPT
     Indication: PSORIASIS
     Dosage: UNK
  3. ACITRETIN. [Suspect]
     Active Substance: ACITRETIN
     Indication: PSORIASIS
     Dosage: UNK

REACTIONS (26)
  - Exfoliative rash [Recovering/Resolving]
  - Pruritus [Recovering/Resolving]
  - Tachypnoea [Recovering/Resolving]
  - Visual impairment [Recovering/Resolving]
  - Wheezing [Recovering/Resolving]
  - Dizziness [Recovering/Resolving]
  - Ischaemic stroke [Recovering/Resolving]
  - Tachycardia [Recovering/Resolving]
  - White blood cell count increased [Recovering/Resolving]
  - Oliguria [Recovering/Resolving]
  - Blood creatinine increased [Recovering/Resolving]
  - Retinal artery occlusion [Recovering/Resolving]
  - Dyspnoea [Recovering/Resolving]
  - Acute myocardial infarction [Recovering/Resolving]
  - Thrombosis [Recovering/Resolving]
  - Pyrexia [Recovering/Resolving]
  - Blister [Recovering/Resolving]
  - Acute kidney injury [Recovering/Resolving]
  - Hypotension [Recovering/Resolving]
  - Nausea [Recovering/Resolving]
  - Troponin increased [Recovering/Resolving]
  - Erythema [Recovering/Resolving]
  - Dermatitis exfoliative [Recovering/Resolving]
  - Chest discomfort [Recovering/Resolving]
  - Antiphospholipid antibodies positive [Recovering/Resolving]
  - Antiphospholipid syndrome [Recovering/Resolving]
